FAERS Safety Report 24697108 (Version 2)
Quarter: 2024Q4

REPORT INFORMATION
  Report Type: Spontaneous
  Country: US (occurrence: US)
  Receive Date: 20241204
  Receipt Date: 20241209
  Transmission Date: 20250115
  Serious: No
  Sender: PFIZER
  Company Number: US-PFIZER INC-202400315621

PATIENT
  Age: 83 Year
  Sex: Female

DRUGS (2)
  1. IBRANCE [Suspect]
     Active Substance: PALBOCICLIB
     Dosage: 125 MG, CYCLIC, ONCE DAILY FOR 21 DAYS OFF 7 DAYS
     Route: 048
  2. IBRANCE [Suspect]
     Active Substance: PALBOCICLIB
     Dosage: 100 MG, CYCLIC,  ONCE DAILY FOR 21 DAYS OFF 7 DAYS
     Route: 048

REACTIONS (2)
  - Joint swelling [Unknown]
  - Intercepted product dispensing error [Unknown]
